FAERS Safety Report 18149279 (Version 2)
Quarter: 2020Q3

REPORT INFORMATION
  Report Type: Report from Study
  Country: None (occurrence: CA)
  Receive Date: 20200813
  Receipt Date: 20200908
  Transmission Date: 20201103
  Serious: Yes (Hospitalization)
  Sender: FDA-Public Use
  Company Number: CA-ABBVIE-20K-028-3523725-00

PATIENT
  Age: 76 Year
  Sex: Female

DRUGS (3)
  1. RINVOQ [Suspect]
     Active Substance: UPADACITINIB
     Indication: RHEUMATOID ARTHRITIS
     Route: 048
     Dates: start: 20200705, end: 2020
  2. RINVOQ [Suspect]
     Active Substance: UPADACITINIB
     Route: 048
     Dates: start: 2020
  3. METHOTREXATE. [Concomitant]
     Active Substance: METHOTREXATE
     Indication: PRODUCT USED FOR UNKNOWN INDICATION
     Route: 050

REACTIONS (7)
  - Gastroenteritis [Recovered/Resolved]
  - Tissue infiltration [Unknown]
  - Diarrhoea [Not Recovered/Not Resolved]
  - Asthenia [Not Recovered/Not Resolved]
  - Pyrexia [Unknown]
  - Dizziness [Not Recovered/Not Resolved]
  - Vomiting [Unknown]

NARRATIVE: CASE EVENT DATE: 2020
